FAERS Safety Report 5268145-4 (Version None)
Quarter: 2007Q1

REPORT INFORMATION
  Report Type: 
  Country: None (occurrence: None)
  Receive Date: 20070316
  Receipt Date: 20070316
  Transmission Date: 20070707
  Serious: Yes (Life-Threatening, Hospitalization)
  Sender: FDA-Public Use
  Company Number: None

PATIENT
  Age: 59 Year
  Sex: Female

DRUGS (1)
  1. VYTORIN [Suspect]
     Indication: BLOOD CHOLESTEROL ABNORMAL
     Dosage: 1 PILL 1 TIME A DAY PO
     Route: 048
     Dates: start: 20060228, end: 20070301

REACTIONS (2)
  - ABDOMINAL DISTENSION [None]
  - RHABDOMYOLYSIS [None]
